FAERS Safety Report 8997231 (Version 2)
Quarter: 2013Q1

REPORT INFORMATION
  Report Type: Spontaneous
  Country: PL (occurrence: PL)
  Receive Date: 20130104
  Receipt Date: 20130109
  Transmission Date: 20140127
  Serious: Yes (Other)
  Sender: FDA-Public Use
  Company Number: PL-BAYER-2013-000771

PATIENT
  Sex: Male
  Weight: 2.65 kg

DRUGS (1)
  1. YAZ [Suspect]
     Dosage: UNK
     Route: 064

REACTIONS (2)
  - Fallot^s tetralogy [None]
  - Foetal exposure timing unspecified [None]
